FAERS Safety Report 5596990-4 (Version None)
Quarter: 2007Q4

REPORT INFORMATION
  Report Type: 
  Country: None (occurrence: None)
  Receive Date: 20071220
  Receipt Date: 20070911
  Transmission Date: 20080405
  Serious: Yes (Hospitalization)
  Sender: FDA-Public Use
  Company Number: 516856

PATIENT
  Age: 61 Year
  Sex: Male

DRUGS (4)
  1. TICLID [Suspect]
     Indication: DRUG USE FOR UNKNOWN INDICATION
     Dates: start: 20070515
  2. ASPIRIN [Concomitant]
  3. LISINOPRIL [Concomitant]
  4. TENORMIN [Concomitant]

REACTIONS (1)
  - DIARRHOEA [None]
